FAERS Safety Report 10004628 (Version 1)
Quarter: 2014Q1

REPORT INFORMATION
  Report Type: Spontaneous
  Country: US (occurrence: US)
  Receive Date: 20140312
  Receipt Date: 20140312
  Transmission Date: 20141002
  Serious: No
  Sender: FDA-Public Use
  Company Number: US-INCYTE CORPORATION-2014IN000351

PATIENT
  Sex: Female
  Weight: 68.03 kg

DRUGS (11)
  1. JAKAFI [Suspect]
     Indication: MYELOFIBROSIS
     Dosage: 10 MG, BID
     Route: 048
     Dates: start: 201306
  2. JAKAFI [Suspect]
     Dosage: 10 MG, QD
     Route: 048
  3. MECLIZINE                          /00072801/ [Concomitant]
     Dosage: 12.5 MG, UNK
     Route: 048
  4. CALCITONIN-SALMON [Concomitant]
     Dosage: 200 UNITS SP
  5. PREVACID [Concomitant]
     Dosage: 15 MG, UNK
  6. ALLOPURINOL [Concomitant]
     Dosage: 100 MG, UNK
     Route: 048
  7. LYRICA [Concomitant]
     Dosage: 100 MG, UNK
     Route: 048
  8. VICODIN [Concomitant]
     Dosage: 5-500
     Route: 048
  9. NORTRIPTYLINE HCL [Concomitant]
     Dosage: 10 MG, UNK
     Route: 048
  10. SIMVASTATIN [Concomitant]
     Dosage: 10 MG, UNK
     Route: 048
  11. METOPROLOL [Concomitant]
     Dosage: 25 MG, UNK
     Route: 048

REACTIONS (2)
  - Laboratory test abnormal [Unknown]
  - Vertigo [Not Recovered/Not Resolved]
